FAERS Safety Report 5108635-8 (Version None)
Quarter: 2006Q3

REPORT INFORMATION
  Report Type: 
  Country: None (occurrence: None)
  Receive Date: 20060915
  Receipt Date: 20060829
  Transmission Date: 20061208
  Serious: Yes (Hospitalization)
  Sender: FDA-Public Use
  Company Number: 229728

PATIENT
  Age: 55 Year
  Sex: Male
  Weight: 68 kg

DRUGS (7)
  1. AVASTIN [Suspect]
     Indication: COLORECTAL CANCER
     Dosage: 5 MG/KG, Q2W, INTRAVENOUS
     Route: 042
     Dates: start: 20051207, end: 20060801
  2. FLUOROURACIL [Suspect]
     Indication: COLORECTAL CANCER
     Dosage: SEE IMAGE
     Route: 042
     Dates: start: 20051207, end: 20060802
  3. FLUOROURACIL [Suspect]
     Indication: COLORECTAL CANCER
     Dosage: SEE IMAGE
     Route: 042
     Dates: start: 20051207, end: 20060803
  4. LEVOLEUCOVORIN CALCIUM (LEVOLEUCOVORIN CALCIUM) [Suspect]
     Indication: COLORECTAL CANCER
     Dosage: 100 MG/M2, Q2W, INTRAVENOUS
     Route: 042
     Dates: start: 20051207, end: 20060808
  5. OXALIPLATIN [Suspect]
     Indication: COLORECTAL CANCER METASTATIC
     Dosage: 85 MG/M2, Q2W, INTRAVENOUS
     Route: 042
     Dates: start: 20051207, end: 20060801
  6. MS CONTIN [Concomitant]
  7. MORPHINE [Concomitant]

REACTIONS (10)
  - ANOREXIA [None]
  - BLOOD PRESSURE INCREASED [None]
  - DEHYDRATION [None]
  - DRY MOUTH [None]
  - FAECALOMA [None]
  - FATIGUE [None]
  - NEUTROPENIA [None]
  - ORAL MUCOSAL DISCOLOURATION [None]
  - RENAL IMPAIRMENT [None]
  - STOMATITIS [None]
